FAERS Safety Report 6678850-0 (Version None)
Quarter: 2010Q2

REPORT INFORMATION
  Report Type: 
  Country: None (occurrence: None)
  Receive Date: 20100413
  Receipt Date: 20100401
  Transmission Date: 20101027
  Serious: Yes (Other)
  Sender: FDA-Public Use
  Company Number: US-PFIZER INC-2010042276

PATIENT
  Sex: Male

DRUGS (4)
  1. ARTHROTEC [Suspect]
     Indication: ARTHRITIS
  2. WARFARIN [Concomitant]
  3. PLAVIX [Concomitant]
  4. ZANTAC [Concomitant]

REACTIONS (1)
  - CORONARY ARTERY BYPASS [None]
